FAERS Safety Report 10459155 (Version 1)
Quarter: 2014Q3

REPORT INFORMATION
  Report Type: Spontaneous
  Country: US (occurrence: None)
  Receive Date: 20140915
  Receipt Date: 20140915
  Transmission Date: 20150326
  Serious: Yes (Hospitalization)
  Sender: FDA-Public Use
  Company Number: IMP_07909_2014

PATIENT
  Age: 59 Year
  Sex: Female

DRUGS (4)
  1. HYDROMORPHONE [Concomitant]
     Active Substance: HYDROMORPHONE
  2. CLONIDINE. [Suspect]
     Active Substance: CLONIDINE
     Indication: BACK PAIN
     Dosage: DF
     Route: 037
     Dates: start: 2001
  3. FENTANYL. [Concomitant]
     Active Substance: FENTANYL
  4. BUPIVACAINE [Concomitant]
     Active Substance: BUPIVACAINE

REACTIONS (3)
  - Dyspnoea [None]
  - Drug withdrawal syndrome [None]
  - Stress cardiomyopathy [None]
